FAERS Safety Report 8452143-3 (Version None)
Quarter: 2012Q2

REPORT INFORMATION
  Report Type: 
  Country: None (occurrence: None)
  Receive Date: 20120620
  Receipt Date: 20120611
  Transmission Date: 20120825
  Serious: Yes (Life-Threatening, Hospitalization)
  Sender: FDA-Public Use
  Company Number: JP-GLAXOSMITHKLINE-B0682084A

PATIENT
  Sex: Female
  Weight: 39 kg

DRUGS (2)
  1. TYKERB [Suspect]
     Indication: BREAST CANCER
     Dosage: 1250MG PER DAY
     Route: 048
     Dates: start: 20100909, end: 20100930
  2. XELODA [Suspect]
     Dosage: 1500MG PER DAY
     Route: 048
     Dates: start: 20100909, end: 20100922

REACTIONS (4)
  - MONOPLEGIA [None]
  - LYMPHANGIOSIS CARCINOMATOSA [None]
  - INTERSTITIAL LUNG DISEASE [None]
  - DECREASED APPETITE [None]
